FAERS Safety Report 12611625 (Version 1)
Quarter: 2016Q3

REPORT INFORMATION
  Report Type: Report from Study
  Country: US (occurrence: US)
  Receive Date: 20160801
  Receipt Date: 20160801
  Transmission Date: 20161109
  Serious: Yes (Hospitalization)
  Sender: FDA-Public Use
  Company Number: US-BIOGEN-2016BI00180411

PATIENT
  Sex: Female
  Weight: 80.36 kg

DRUGS (1)
  1. TECFIDERA [Suspect]
     Active Substance: DIMETHYL FUMARATE
     Indication: MULTIPLE SCLEROSIS
     Route: 048
     Dates: start: 20130804

REACTIONS (3)
  - Hypotonia [Unknown]
  - Musculoskeletal stiffness [Not Recovered/Not Resolved]
  - Drug dose omission [Unknown]
